FAERS Safety Report 5008872-7 (Version None)
Quarter: 2006Q2

REPORT INFORMATION
  Report Type: 
  Country: None (occurrence: None)
  Receive Date: 20060518
  Receipt Date: 20060505
  Transmission Date: 20061013
  Serious: Yes (Disabling)
  Sender: FDA-Public Use
  Company Number: TRP_0772_2006

PATIENT
  Age: 51 Year
  Sex: Male

DRUGS (16)
  1. RIBASPHERE [Suspect]
     Indication: HEPATITIS C
     Dosage: DF UNK PO
     Route: 048
     Dates: start: 20050903
  2. PEG-INTRON [Suspect]
     Indication: HEPATITIS C
     Dosage: DF UNK SC
     Route: 058
     Dates: start: 20050903
  3. BENADRYL [Concomitant]
  4. CIPRO [Concomitant]
  5. KLONOPIN [Concomitant]
  6. LOPRESSOR [Concomitant]
  7. NEURONTIN [Concomitant]
  8. OYSTER CALCIUM [Concomitant]
  9. PERCOCET [Concomitant]
  10. PREDNISONE [Concomitant]
  11. PRINIVIL [Concomitant]
  12. PROTONIX [Concomitant]
  13. PROZAC [Concomitant]
  14. VOLTAREN [Concomitant]
  15. ZANAFLEX [Concomitant]
  16. STOOL SOFTENER [Concomitant]

REACTIONS (6)
  - ANAEMIA [None]
  - RASH ERYTHEMATOUS [None]
  - RASH MACULAR [None]
  - SINUSITIS [None]
  - VIRAL INFECTION [None]
  - WHITE BLOOD CELL COUNT DECREASED [None]
